FAERS Safety Report 10639158 (Version 1)
Quarter: 2014Q4

REPORT INFORMATION
  Report Type: Spontaneous
  Country: US (occurrence: US)
  Receive Date: 20141208
  Receipt Date: 20141208
  Transmission Date: 20150529
  Serious: No
  Sender: FDA-Public Use
  Company Number: US-BAUSCH-BL-2014-006651

PATIENT
  Age: 61 Year
  Sex: Male

DRUGS (1)
  1. CARAC [Suspect]
     Active Substance: FLUOROURACIL
     Indication: THERAPEUTIC SKIN CARE TOPICAL
     Route: 061
     Dates: start: 201410, end: 201410

REACTIONS (3)
  - Application site irritation [Unknown]
  - Application site discharge [Unknown]
  - Application site swelling [Unknown]

NARRATIVE: CASE EVENT DATE: 201410
